FAERS Safety Report 5801208-0 (Version None)
Quarter: 2008Q3

REPORT INFORMATION
  Report Type: 
  Country: None (occurrence: None)
  Receive Date: 20080702
  Receipt Date: 20080616
  Transmission Date: 20090109
  Serious: Yes (Hospitalization, Other)
  Sender: FDA-Public Use
  Company Number: 2008BI012281

PATIENT
  Age: 69 Year
  Sex: Female

DRUGS (14)
  1. AVONEX [Suspect]
     Indication: MULTIPLE SCLEROSIS
     Dosage: 30 UG; QW; IM
     Route: 030
     Dates: start: 20030523
  2. AVAPRO [Concomitant]
  3. ARANESP [Concomitant]
  4. PROTONIX [Concomitant]
  5. BACLOFEN [Concomitant]
  6. LYRICA [Concomitant]
  7. TORSEMIDE [Concomitant]
  8. SYNTHROID [Concomitant]
  9. ACTONEL [Concomitant]
  10. TYLENOL [Concomitant]
  11. JANUVIA [Concomitant]
  12. HUMALOG [Concomitant]
  13. ROCALTROL [Concomitant]
  14. CLONAZEPAM [Concomitant]

REACTIONS (14)
  - ACUTE PRERENAL FAILURE [None]
  - ANXIETY [None]
  - BLOOD CREATINE PHOSPHOKINASE INCREASED [None]
  - HYPERLIPIDAEMIA [None]
  - HYPERPARATHYROIDISM SECONDARY [None]
  - HYPERURICAEMIA [None]
  - HYPOTHYROIDISM [None]
  - MUSCLE SPASMS [None]
  - OBSTRUCTIVE UROPATHY [None]
  - RENAL ARTERY STENOSIS [None]
  - RENAL DISORDER [None]
  - RENAL FAILURE CHRONIC [None]
  - RENAL INJURY [None]
  - VITAMIN D DEFICIENCY [None]
